FAERS Safety Report 8277337-1 (Version None)
Quarter: 2012Q2

REPORT INFORMATION
  Report Type: 
  Country: None (occurrence: None)
  Receive Date: 20120412
  Receipt Date: 20120410
  Transmission Date: 20120825
  Serious: Yes (Death, Hospitalization, Other)
  Sender: FDA-Public Use
  Company Number: PE-PFIZER INC-2012075737

PATIENT
  Age: 89 Year
  Sex: Female

DRUGS (1)
  1. AMLODIPINE BESYLATE AND ATORVASTATIN CALCIUM [Suspect]
     Indication: HYPERTENSION
     Dosage: 10 MG, ONCE DAILY
     Route: 048

REACTIONS (2)
  - PNEUMONIA [None]
  - COLON CANCER [None]
